FAERS Safety Report 13876272 (Version 1)
Quarter: 2017Q3

REPORT INFORMATION
  Report Type: Spontaneous
  Country: GB (occurrence: GB)
  Receive Date: 20170817
  Receipt Date: 20170817
  Transmission Date: 20171127
  Serious: Yes (Hospitalization, Other)
  Sender: FDA-Public Use
  Company Number: GB-009507513-1708GBR007138

PATIENT
  Age: 74 Year
  Weight: 53.1 kg

DRUGS (2)
  1. CYCLOSPORINE. [Concomitant]
     Active Substance: CYCLOSPORINE
     Indication: APLASTIC ANAEMIA
  2. ZOCOR [Suspect]
     Active Substance: SIMVASTATIN
     Indication: HYPERCHOLESTEROLAEMIA
     Dosage: NIGHT
     Route: 048

REACTIONS (4)
  - Odynophagia [Unknown]
  - Aplastic anaemia [Recovering/Resolving]
  - Neutropenic sepsis [Unknown]
  - Tonsillitis [Unknown]
